FAERS Safety Report 19134600 (Version 1)
Quarter: 2021Q2

REPORT INFORMATION
  Report Type: Report from Study
  Country: BR (occurrence: BR)
  Receive Date: 20210414
  Receipt Date: 20210414
  Transmission Date: 20210717
  Serious: Yes (Other)
  Sender: FDA-Public Use
  Company Number: BR-TAKEDA-BR201925165

PATIENT
  Sex: Male
  Weight: 82.7 kg

DRUGS (1)
  1. HEMO?8R [Suspect]
     Active Substance: ANTIHEMOPHILIC FACTOR, HUMAN RECOMBINANT
     Indication: FACTOR VIII DEFICIENCY
     Dosage: UNK, 3X A WEEK (MONDAYS, WEDNESDAYS AND FRIDAYS)
     Route: 042
     Dates: start: 19901213

REACTIONS (5)
  - Gait disturbance [Unknown]
  - Weight decreased [Not Recovered/Not Resolved]
  - Femur fracture [Unknown]
  - Joint stiffness [Unknown]
  - Weight increased [Unknown]
